FAERS Safety Report 18092454 (Version 2)
Quarter: 2020Q3

REPORT INFORMATION
  Report Type: Spontaneous
  Country: US (occurrence: US)
  Receive Date: 20200730
  Receipt Date: 20200807
  Transmission Date: 20201103
  Serious: No
  Sender: FDA-Public Use
  Company Number: US-PFIZER INC-2020288391

PATIENT

DRUGS (1)
  1. METHOTREXATE SODIUM. [Suspect]
     Active Substance: METHOTREXATE SODIUM
     Indication: JUVENILE IDIOPATHIC ARTHRITIS
     Dosage: UNK
     Dates: end: 2017

REACTIONS (7)
  - Influenza like illness [Unknown]
  - Drug ineffective [Unknown]
  - Condition aggravated [Unknown]
  - Illness [Unknown]
  - Vomiting [Unknown]
  - Hypersomnia [Unknown]
  - Gait inability [Unknown]
